FAERS Safety Report 10161218 (Version 1)
Quarter: 2014Q2

REPORT INFORMATION
  Report Type: Spontaneous
  Country: CH (occurrence: CH)
  Receive Date: 20140508
  Receipt Date: 20140508
  Transmission Date: 20141212
  Serious: Yes (Other)
  Sender: FDA-Public Use
  Company Number: PHHY2014CH053863

PATIENT
  Age: 64 Year
  Sex: Male

DRUGS (1)
  1. GILENYA [Suspect]

REACTIONS (2)
  - Hypertension [Unknown]
  - Therapeutic response changed [Unknown]
